FAERS Safety Report 5012552-1 (Version None)
Quarter: 2006Q2

REPORT INFORMATION
  Report Type: 
  Country: None (occurrence: None)
  Receive Date: 20060414
  Receipt Date: 20060116
  Transmission Date: 20061013
  Serious: No
  Sender: FDA-Public Use
  Company Number: 2006SP000261

PATIENT
  Age: 49 Year
  Sex: Male
  Weight: 86.1834 kg

DRUGS (7)
  1. LUNESTA [Suspect]
     Indication: INSOMNIA
     Dosage: 3 MG;HS;ORAL
     Route: 048
     Dates: start: 20060101
  2. LUNESTA [Suspect]
     Indication: SHOULDER PAIN
     Dosage: 3 MG;HS;ORAL
     Route: 048
     Dates: start: 20060101
  3. ACCUPRIL [Concomitant]
  4. ALPRAZOLAM [Concomitant]
  5. ZETIA [Concomitant]
  6. VITAMIN B COMPLEX CAP [Concomitant]
  7. MULTIVITAMIN [Concomitant]

REACTIONS (1)
  - MIDDLE INSOMNIA [None]
